FAERS Safety Report 7896960-7 (Version None)
Quarter: 2011Q4

REPORT INFORMATION
  Report Type: 
  Country: None (occurrence: None)
  Receive Date: 20111104
  Receipt Date: 20111104
  Transmission Date: 20120403
  Serious: Yes (Hospitalization)
  Sender: FDA-Public Use
  Company Number: None

PATIENT
  Sex: Female
  Weight: 61.2356 kg

DRUGS (3)
  1. KEPPRA [Suspect]
  2. VIMPAT [Suspect]
  3. DILANTIN [Suspect]

REACTIONS (8)
  - VOMITING [None]
  - OFF LABEL USE [None]
  - PSYCHOTIC DISORDER [None]
  - THINKING ABNORMAL [None]
  - HALLUCINATION, VISUAL [None]
  - CONVULSION [None]
  - GAIT DISTURBANCE [None]
  - AGGRESSION [None]
